FAERS Safety Report 9915185 (Version 1)
Quarter: 2014Q1

REPORT INFORMATION
  Report Type: Spontaneous
  Country: IT (occurrence: IT)
  Receive Date: 20140220
  Receipt Date: 20140220
  Transmission Date: 20141002
  Serious: Yes (Hospitalization)
  Sender: FDA-Public Use
  Company Number: IT-BRISTOL-MYERS SQUIBB COMPANY-20202818

PATIENT
  Age: 79 Year
  Sex: Male

DRUGS (9)
  1. COUMADIN TABS 5 MG [Suspect]
     Indication: ATRIAL FIBRILLATION
     Dosage: 1DF:1 UNIT
     Route: 048
     Dates: start: 20130101, end: 20131105
  2. LANOXIN [Suspect]
     Indication: CARDIAC DISORDER
     Dosage: 1DF:1 UNIT?0.125 MG TABS
     Route: 048
     Dates: start: 20130101, end: 20131105
  3. CITALOPRAM [Concomitant]
     Route: 048
  4. RANITIDINE [Concomitant]
     Route: 048
  5. SPIRIVA [Concomitant]
  6. ALIFLUS DISKUS [Concomitant]
  7. KANRENOL [Concomitant]
     Route: 048
  8. LASIX [Concomitant]
     Dosage: TABS
     Route: 048
  9. QUARK [Concomitant]
     Dosage: TABS
     Route: 048

REACTIONS (3)
  - Duodenal ulcer [Unknown]
  - Haemorrhage [Unknown]
  - Faeces discoloured [Unknown]
